FAERS Safety Report 21894452 (Version 1)
Quarter: 2023Q1

REPORT INFORMATION
  Report Type: Spontaneous
  Country: FR (occurrence: FR)
  Receive Date: 20230121
  Receipt Date: 20230121
  Transmission Date: 20230418
  Serious: Yes (Other)
  Sender: FDA-Public Use
  Company Number: FR-NOVEN PHARMACEUTICALS, INC.-2023-NOV-FR000042

PATIENT
  Age: 44 Year
  Sex: Female

DRUGS (2)
  1. ESTRADIOL [Suspect]
     Active Substance: ESTRADIOL
     Indication: Hormone replacement therapy
     Dosage: UNK, UNKNOWN
     Route: 062
  2. PRAZEPAM [Concomitant]
     Active Substance: PRAZEPAM
     Indication: Anxiety
     Dosage: UNK, UNKNOWN
     Route: 065

REACTIONS (2)
  - Retinal vein occlusion [Recovered/Resolved]
  - Retinopathy hypertensive [Recovered/Resolved]
